FAERS Safety Report 4893410-X (Version None)
Quarter: 2006Q1

REPORT INFORMATION
  Report Type: 
  Country: None (occurrence: None)
  Receive Date: 20060127
  Receipt Date: 20060116
  Transmission Date: 20060701
  Serious: Yes (Death, Hospitalization)
  Sender: FDA-Public Use
  Company Number: IN-AVENTIS-200610534GDDC

PATIENT
  Age: 70 Year
  Sex: Male

DRUGS (5)
  1. ARAVA [Suspect]
     Indication: RHEUMATOID ARTHRITIS
     Route: 048
     Dates: start: 20051205
  2. ARAVA [Suspect]
     Route: 048
     Dates: start: 20051201
  3. NIFEDIPINE [Concomitant]
     Dosage: DOSE: UNK
  4. ATEN [Concomitant]
     Dosage: DOSE: UNK
  5. TAMSULOSIN HCL [Concomitant]
     Dosage: DOSE: UNK

REACTIONS (13)
  - ALANINE AMINOTRANSFERASE INCREASED [None]
  - ANOREXIA [None]
  - ASPARTATE AMINOTRANSFERASE INCREASED [None]
  - BLOOD BILIRUBIN INCREASED [None]
  - COUGH [None]
  - HEPATIC FUNCTION ABNORMAL [None]
  - MULTI-ORGAN FAILURE [None]
  - NASOPHARYNGITIS [None]
  - PANCYTOPENIA [None]
  - PNEUMONIA [None]
  - POLYURIA [None]
  - PYREXIA [None]
  - SEPSIS [None]
